FAERS Safety Report 6656064-8 (Version None)
Quarter: 2010Q1

REPORT INFORMATION
  Report Type: 
  Country: None (occurrence: None)
  Receive Date: 20100329
  Receipt Date: 20100322
  Transmission Date: 20100710
  Serious: Yes (Other)
  Sender: FDA-Public Use
  Company Number: A0851383A

PATIENT
  Age: 43 Year
  Sex: Male

DRUGS (4)
  1. IMITREX [Suspect]
     Indication: MIGRAINE
     Route: 048
     Dates: start: 20050101
  2. IMITREX [Suspect]
     Dosage: 6MG PER DAY
     Route: 048
  3. TREXIMET [Suspect]
     Indication: MIGRAINE
     Dosage: 1TAB PER DAY
     Route: 048
     Dates: start: 20080101
  4. NO CONCURRENT MEDICATION [Concomitant]

REACTIONS (5)
  - AORTIC ANEURYSM [None]
  - CARDIAC MURMUR [None]
  - FATIGUE [None]
  - SENSATION OF HEAVINESS [None]
  - SUNBURN [None]
